FAERS Safety Report 6163538-5 (Version None)
Quarter: 2009Q2

REPORT INFORMATION
  Report Type: 
  Country: None (occurrence: None)
  Receive Date: 20090422
  Receipt Date: 20090414
  Transmission Date: 20091009
  Serious: Yes (Hospitalization)
  Sender: FDA-Public Use
  Company Number: BR-ABBOTT-09P-020-0568064-00

PATIENT
  Age: 70 Year
  Sex: Female

DRUGS (1)
  1. HUMIRA [Suspect]
     Indication: RHEUMATOID ARTHRITIS
     Dosage: TWO INJECTIONS
     Route: 058
     Dates: start: 20090121, end: 20090205

REACTIONS (5)
  - ABDOMINAL PAIN [None]
  - ASTHENIA [None]
  - HEPATIC ENZYME ABNORMAL [None]
  - HOSPITALISATION [None]
  - VOMITING [None]
